FAERS Safety Report 7250743-X (Version None)
Quarter: 2011Q1

REPORT INFORMATION
  Report Type: 
  Country: None (occurrence: None)
  Receive Date: 20110118
  Receipt Date: 20110106
  Transmission Date: 20110831
  Serious: Yes (Hospitalization)
  Sender: FDA-Public Use
  Company Number: 1000018165

PATIENT
  Age: 75 Year
  Sex: Female

DRUGS (5)
  1. PREVISCAN (FLUINDIONE) (TABLETS) [Concomitant]
  2. ALLOPURINOL [Suspect]
     Dosage: 200 MG (200 MG, 1 IN 1 D), ORAL
     Route: 048
  3. CITALOPRAM HYDROBROMIDE [Suspect]
     Dosage: 40 MG (20MG, 2 IN 1 D), ORAL
     Route: 048
  4. ATARAX (HYDROROXYZINE) (HYDROXYZINE) [Concomitant]
  5. REVISCAN (FLUINDIONE) (TABLETS) [Suspect]
     Dosage: 15 MG (15 MG,1 IN 1 D), ORAL
     Route: 048
     Dates: end: 20100812

REACTIONS (5)
  - FALL [None]
  - HAEMATOMA [None]
  - WRIST FRACTURE [None]
  - ANAEMIA [None]
  - INTERNATIONAL NORMALISED RATIO INCREASED [None]
